FAERS Safety Report 8340978-7 (Version None)
Quarter: 2012Q2

REPORT INFORMATION
  Report Type: 
  Country: None (occurrence: None)
  Receive Date: 20120507
  Receipt Date: 20120501
  Transmission Date: 20120825
  Serious: Yes (Death)
  Sender: FDA-Public Use
  Company Number: US-ASTRAZENECA-2012SE28273

PATIENT
  Age: 60 Year
  Sex: Female

DRUGS (4)
  1. SEROQUEL XR [Suspect]
     Indication: AFFECTIVE DISORDER
     Route: 048
  2. TEMAZEPAM [Concomitant]
  3. CONCERTA [Concomitant]
  4. PRISTIQ [Concomitant]

REACTIONS (1)
  - COMPLETED SUICIDE [None]
